FAERS Safety Report 15300804 (Version 8)
Quarter: 2020Q3

REPORT INFORMATION
  Report Type: Report from Study
  Country: AU (occurrence: AU)
  Receive Date: 20180821
  Receipt Date: 20181221
  Transmission Date: 20201104
  Serious: Yes (Death, Life-Threatening, Hospitalization, Other)
  Sender: FDA-Public Use
  Company Number: AU-JNJFOC-20180734691

PATIENT
  Age: 91 Year
  Sex: Male
  Weight: 65 kg

DRUGS (13)
  1. DURO?TUSS [Concomitant]
     Active Substance: PHOLCODINE
     Indication: COUGH
     Route: 048
     Dates: start: 20180730, end: 20180730
  2. IBRUTINIB [Suspect]
     Active Substance: IBRUTINIB
     Route: 048
  3. SODIUM BICARBONATE. [Concomitant]
     Active Substance: SODIUM BICARBONATE
     Indication: PROPHYLAXIS
     Route: 048
     Dates: start: 20180724, end: 20180728
  4. NORMAL SALINE [Concomitant]
     Active Substance: SODIUM CHLORIDE
     Indication: PROPHYLAXIS
     Dosage: 10 M/S
     Route: 042
     Dates: start: 20180726, end: 20180803
  5. SERTRALINE [Concomitant]
     Active Substance: SERTRALINE HYDROCHLORIDE
     Indication: MOOD ALTERED
     Route: 048
     Dates: start: 20180802, end: 20180802
  6. IBRUTINIB [Suspect]
     Active Substance: IBRUTINIB
     Indication: NON-HODGKIN^S LYMPHOMA
     Route: 048
     Dates: start: 20140630, end: 20180702
  7. SODIUM BICARBONATE. [Concomitant]
     Active Substance: SODIUM BICARBONATE
     Indication: BLOOD BICARBONATE DECREASED
     Route: 048
     Dates: start: 20180724, end: 20180728
  8. METHYLATED SPIRITS. [Concomitant]
     Active Substance: METHYLATED SPIRITS
     Indication: INFECTION PROPHYLAXIS
     Route: 061
  9. AMPHOTERICIN [Concomitant]
     Active Substance: AMPHOTERICIN B
     Indication: OROPHARYNGEAL PAIN
     Route: 048
     Dates: start: 20180730, end: 20180803
  10. FRUSEMIDE [Concomitant]
     Active Substance: FUROSEMIDE
     Indication: DIURETIC THERAPY
     Route: 042
     Dates: start: 20180803, end: 20180803
  11. BENDAMUSTINE [Suspect]
     Active Substance: BENDAMUSTINE
     Indication: NON-HODGKIN^S LYMPHOMA
     Route: 042
  12. RITUXIMAB. [Suspect]
     Active Substance: RITUXIMAB
     Indication: NON-HODGKIN^S LYMPHOMA
     Route: 065
  13. MAXOLON [Concomitant]
     Active Substance: METOCLOPRAMIDE HYDROCHLORIDE
     Indication: NAUSEA
     Route: 048
     Dates: start: 20180730, end: 20180803

REACTIONS (3)
  - Upper gastrointestinal haemorrhage [Not Recovered/Not Resolved]
  - Nocardiosis [Fatal]
  - Rhinovirus infection [Recovered/Resolved]

NARRATIVE: CASE EVENT DATE: 20180705
